FAERS Safety Report 4977129-2 (Version None)
Quarter: 2006Q2

REPORT INFORMATION
  Report Type: 
  Country: None (occurrence: None)
  Receive Date: 20060413
  Receipt Date: 20060404
  Transmission Date: 20061013
  Serious: Yes (Hospitalization)
  Sender: FDA-Public Use
  Company Number: 2006BI001619

PATIENT
  Age: 43 Year
  Sex: Female
  Weight: 81.6475 kg

DRUGS (7)
  1. AVONEX [Suspect]
     Indication: MULTIPLE SCLEROSIS
     Dosage: 30 UG;QW;IM
     Route: 030
     Dates: start: 19981102
  2. TYLENOL (CAPLET) [Concomitant]
  3. SYNTHROID [Concomitant]
  4. ATENOLOL [Concomitant]
  5. LEXAPRO [Concomitant]
  6. KLONOPIN [Concomitant]
  7. LAMICTAL [Concomitant]

REACTIONS (2)
  - OPTIC NEURITIS [None]
  - VISUAL ACUITY REDUCED [None]
